FAERS Safety Report 4657960-3 (Version None)
Quarter: 2005Q2

REPORT INFORMATION
  Report Type: 
  Country: None (occurrence: None)
  Receive Date: 20050510
  Receipt Date: 20050503
  Transmission Date: 20051028
  Serious: Yes (Life-Threatening, Hospitalization)
  Sender: FDA-Public Use
  Company Number: 2005GB00857

PATIENT
  Age: 83 Year
  Sex: Female

DRUGS (4)
  1. TAMOXIFEN CITRATE [Suspect]
     Indication: BREAST CANCER
     Route: 048
     Dates: end: 20050410
  2. THYROXINE [Concomitant]
     Route: 048
  3. SIMVASTATIN [Concomitant]
     Route: 048
     Dates: start: 19950101
  4. NEXIUM [Concomitant]
     Route: 048

REACTIONS (1)
  - LONG QT SYNDROME [None]
